FAERS Safety Report 5910831-4 (Version None)
Quarter: 2008Q4

REPORT INFORMATION
  Report Type: 
  Country: None (occurrence: None)
  Receive Date: 20081007
  Receipt Date: 20080925
  Transmission Date: 20090506
  Serious: Yes (Life-Threatening, Other)
  Sender: FDA-Public Use
  Company Number: TH-ROCHE-582832

PATIENT
  Age: 85 Year
  Sex: Female
  Weight: 51 kg

DRUGS (6)
  1. OSELTAMIVIR [Suspect]
     Indication: AVIAN INFLUENZA
     Route: 065
     Dates: start: 20080807, end: 20080816
  2. BLINDED OSELTAMIVIR [Suspect]
     Indication: AVIAN INFLUENZA
     Dosage: DOSE BLINDED.
     Route: 065
     Dates: start: 20080807, end: 20080816
  3. PLAVIX [Concomitant]
     Indication: ACUTE CORONARY SYNDROME
     Route: 048
     Dates: start: 20080808, end: 20080826
  4. MEROPENEM [Concomitant]
     Route: 042
     Dates: start: 20080809, end: 20080818
  5. LASIX [Concomitant]
     Route: 048
     Dates: start: 20080812, end: 20080826
  6. CORDARONE [Concomitant]
     Route: 048
     Dates: start: 20080815, end: 20080826

REACTIONS (2)
  - AZOTAEMIA [None]
  - HYPERURICAEMIA [None]
